FAERS Safety Report 7437472-4 (Version None)
Quarter: 2011Q2

REPORT INFORMATION
  Report Type: 
  Country: None (occurrence: None)
  Receive Date: 20110426
  Receipt Date: 20110404
  Transmission Date: 20111010
  Serious: Yes (Life-Threatening, Hospitalization, Other)
  Sender: FDA-Public Use
  Company Number: JP-PFIZER INC-JP-WYE-H11940209

PATIENT
  Age: 80 Year
  Sex: Male
  Weight: 60 kg

DRUGS (16)
  1. PLAVIX [Concomitant]
     Dosage: UNK
     Route: 048
  2. SIGMART [Concomitant]
     Dosage: UNK
     Route: 048
     Dates: start: 20091014
  3. EPADEL [Concomitant]
     Route: 048
  4. ASPIRIN [Concomitant]
     Dosage: UNK
     Route: 048
     Dates: start: 20091014
  5. TENORMIN [Concomitant]
     Dosage: UNK
     Route: 048
     Dates: start: 20091014
  6. OMEPRAZOLE [Concomitant]
  7. ZOSYN [Suspect]
     Indication: SEPSIS
     Dosage: 4.5 G, 1X/DAY
     Route: 041
     Dates: start: 20091026, end: 20091026
  8. STREPTOMYCIN SULFATE [Suspect]
     Indication: TUBERCULOSIS
  9. RIFADIN [Concomitant]
     Dosage: UNK
     Route: 048
     Dates: start: 20091006
  10. ACTONEL [Concomitant]
     Dosage: UNK
     Route: 048
  11. GASMOTIN [Concomitant]
     Dosage: UNK
     Route: 048
     Dates: start: 20091006
  12. MUCOSTA [Concomitant]
     Dosage: UNK
     Route: 048
     Dates: start: 20091016
  13. STREPTOMYCIN SULFATE [Suspect]
     Indication: PLEURISY
     Dosage: 0.8 G, 2X/WEEK
     Route: 030
     Dates: start: 20091007, end: 20091029
  14. ISONIAZID [Concomitant]
     Dosage: UNK
     Route: 048
     Dates: start: 20091006
  15. LANSOPRAZOLE [Concomitant]
     Dosage: UNK
     Route: 048
  16. PREDNISOLONE [Concomitant]
     Dosage: UNK
     Route: 048

REACTIONS (3)
  - CONVULSION [None]
  - ANAPHYLACTIC SHOCK [None]
  - RESPIRATORY FAILURE [None]
